FAERS Safety Report 21921724 (Version 1)
Quarter: 2023Q1

REPORT INFORMATION
  Report Type: Spontaneous
  Country: JP (occurrence: JP)
  Receive Date: 20230127
  Receipt Date: 20230127
  Transmission Date: 20230417
  Serious: Yes (Death, Other)
  Sender: FDA-Public Use
  Company Number: JP-GILEAD-2023-0613253

PATIENT
  Age: 88 Year
  Sex: Female

DRUGS (1)
  1. VEKLURY [Suspect]
     Active Substance: REMDESIVIR
     Indication: COVID-19
     Dosage: UNK
     Route: 041
     Dates: start: 20230105, end: 20230107

REACTIONS (5)
  - Cardiac failure chronic [Fatal]
  - Renal impairment [Unknown]
  - Pyrexia [Unknown]
  - Hepatic function abnormal [Unknown]
  - SARS-CoV-2 test positive [Unknown]
